FAERS Safety Report 10072272 (Version 1)
Quarter: 2014Q2

REPORT INFORMATION
  Report Type: Spontaneous
  Country: GB (occurrence: GB)
  Receive Date: 20140411
  Receipt Date: 20140411
  Transmission Date: 20141212
  Serious: Yes (Disabling)
  Sender: FDA-Public Use
  Company Number: GB-ACCORD-022910

PATIENT
  Age: 92 Year
  Sex: Female
  Weight: 65 kg

DRUGS (3)
  1. DONEPEZIL/DONEPEZIL HYDROCHLORIDE [Suspect]
     Indication: PRODUCT USED FOR UNKNOWN INDICATION
     Dates: start: 20131217
  2. TERBINAFINE/TERBINAFINE HYDROCHLORIDE [Concomitant]
     Dates: start: 20140320
  3. FOLIC ACID [Concomitant]
     Dates: start: 20131217, end: 20140320

REACTIONS (4)
  - Decreased appetite [Recovered/Resolved]
  - Social avoidant behaviour [Recovering/Resolving]
  - Nasopharyngitis [Unknown]
  - Rhinorrhoea [Recovering/Resolving]
